FAERS Safety Report 5407346-9 (Version None)
Quarter: 2007Q3

REPORT INFORMATION
  Report Type: 
  Country: None (occurrence: None)
  Receive Date: 20070802
  Receipt Date: 20070719
  Transmission Date: 20080115
  Serious: Yes (Death, Hospitalization)
  Sender: FDA-Public Use
  Company Number: 2007EU001659

PATIENT
  Age: 58 Year
  Sex: Male

DRUGS (3)
  1. TACROLIMUS [Suspect]
     Indication: HEART TRANSPLANT
     Dosage: 4 MG, BID, ORAL
     Route: 048
     Dates: start: 20001001
  2. AZATHIOPRINE [Concomitant]
  3. PREDNISONE TAB [Concomitant]

REACTIONS (4)
  - LOBAR PNEUMONIA [None]
  - LUNG ADENOCARCINOMA METASTATIC [None]
  - METASTASIS [None]
  - PLEURAL DISORDER [None]
